FAERS Safety Report 5122060-5 (Version None)
Quarter: 2006Q4

REPORT INFORMATION
  Report Type: 
  Country: None (occurrence: None)
  Receive Date: 20061004
  Receipt Date: 20061004
  Transmission Date: 20070319
  Serious: Yes (Other)
  Sender: FDA-Public Use
  Company Number: None

PATIENT
  Age: 85 Year
  Sex: Female

DRUGS (6)
  1. REVLIMID [Suspect]
     Indication: MULTIPLE MYELOMA
     Dosage: 10MG  QD  PO
     Route: 048
     Dates: start: 20060523, end: 20061003
  2. HYDROXYZINE [Concomitant]
  3. CLOBETASOL CREAM [Concomitant]
  4. LORAZEPAM [Concomitant]
  5. ZOMETA [Concomitant]
  6. ATENOLOL [Concomitant]

REACTIONS (2)
  - DRUG ERUPTION [None]
  - PRURITUS [None]
